FAERS Safety Report 22306136 (Version 2)
Quarter: 2023Q2

REPORT INFORMATION
  Report Type: Spontaneous
  Country: US (occurrence: US)
  Receive Date: 20230511
  Receipt Date: 20230523
  Transmission Date: 20230721
  Serious: No
  Sender: FDA-Public Use
  Company Number: None

PATIENT
  Sex: Female

DRUGS (1)
  1. CROMOLYN SODIUM [Suspect]
     Active Substance: CROMOLYN SODIUM
     Indication: Product used for unknown indication
     Route: 065
     Dates: start: 20230426

REACTIONS (6)
  - Vision blurred [Unknown]
  - Confusional state [Unknown]
  - Muscle disorder [Unknown]
  - Nausea [Unknown]
  - Fatigue [Unknown]
  - Abdominal pain [Unknown]

NARRATIVE: CASE EVENT DATE: 20230401
